FAERS Safety Report 4557534-9 (Version None)
Quarter: 2005Q1

REPORT INFORMATION
  Report Type: 
  Country: None (occurrence: None)
  Receive Date: 20050103
  Receipt Date: 20040831
  Transmission Date: 20050727
  Serious: Yes (Other)
  Sender: FDA-Public Use
  Company Number: 2004UW18398

PATIENT
  Age: 73 Year
  Sex: Female
  Weight: 102.0593 kg

DRUGS (4)
  1. CRESTOR [Suspect]
     Indication: HYPERCHOLESTEROLAEMIA
     Dosage: 10 MG QD PO
     Route: 048
  2. BENICAR [Concomitant]
  3. ASPIRIN [Concomitant]
  4. METOPROLOL [Concomitant]

REACTIONS (2)
  - ABDOMINAL PAIN UPPER [None]
  - EATING DISORDER [None]
